FAERS Safety Report 15846612 (Version 1)
Quarter: 2019Q1

REPORT INFORMATION
  Report Type: Spontaneous
  Country: JP (occurrence: JP)
  Receive Date: 20190121
  Receipt Date: 20190121
  Transmission Date: 20190417
  Serious: No
  Sender: FDA-Public Use
  Company Number: JP-LUPIN PHARMACEUTICALS INC.-2019-00012

PATIENT
  Age: 62 Year
  Sex: Female

DRUGS (4)
  1. OXYCODONE [Interacting]
     Active Substance: OXYCODONE
     Dosage: 120 MG, QD
     Route: 065
  2. ERYTHROMYCIN. [Interacting]
     Active Substance: ERYTHROMYCIN
     Dosage: UNK (RESTARTED)
     Route: 065
  3. OXYCODONE [Suspect]
     Active Substance: OXYCODONE
     Indication: ANALGESIC THERAPY
     Dosage: 60 MG, QD
     Route: 065
  4. ERYTHROMYCIN. [Interacting]
     Active Substance: ERYTHROMYCIN
     Indication: CONSTIPATION
     Dosage: 800 MG, QD
     Route: 065

REACTIONS (4)
  - Somnolence [Recovered/Resolved]
  - Nausea [Recovered/Resolved]
  - Constipation [Unknown]
  - Drug interaction [Unknown]
